FAERS Safety Report 9438851 (Version 2)
Quarter: 2013Q3

REPORT INFORMATION
  Report Type: Spontaneous
  Country: US (occurrence: US)
  Receive Date: 20130802
  Receipt Date: 20130820
  Transmission Date: 20140515
  Serious: No
  Sender: FDA-Public Use
  Company Number: US-RB-056813-13

PATIENT
  Age: 49 Year
  Sex: Female

DRUGS (1)
  1. SUBOXONE UNSPECIFIED [Suspect]
     Indication: PRODUCT USED FOR UNKNOWN INDICATION
     Dosage: DOSING DETAILS UNKNOWN
     Route: 065
     Dates: start: 20130809

REACTIONS (1)
  - No adverse event [Not Recovered/Not Resolved]
